FAERS Safety Report 8396320-9 (Version None)
Quarter: 2012Q2

REPORT INFORMATION
  Report Type: 
  Country: None (occurrence: None)
  Receive Date: 20120530
  Receipt Date: 20120518
  Transmission Date: 20120825
  Serious: Yes (Hospitalization)
  Sender: FDA-Public Use
  Company Number: US-ELI_LILLY_AND_COMPANY-US201201000761

PATIENT
  Sex: Male

DRUGS (8)
  1. TIZANIDINE [Concomitant]
     Dosage: UNK, PRN
  2. BENADRYL [Concomitant]
     Indication: ADVERSE REACTION
     Dosage: UNK, PRN
  3. VITAMIN B COMPLEX CAP [Concomitant]
  4. ONDANSETRON [Concomitant]
     Dosage: UNK, PRN
  5. FORTEO [Suspect]
     Indication: OSTEOPOROSIS
     Dosage: 20 UG, QD
     Route: 065
     Dates: end: 20111209
  6. OXYCODONE HCL [Concomitant]
  7. NEXIUM [Concomitant]
  8. LOVAZA [Concomitant]

REACTIONS (6)
  - ABDOMINAL PAIN [None]
  - BURNING SENSATION [None]
  - BACK PAIN [None]
  - MUSCLE SPASMS [None]
  - PAIN [None]
  - BACK DISORDER [None]
